FAERS Safety Report 8415338-0 (Version None)
Quarter: 2012Q2

REPORT INFORMATION
  Report Type: 
  Country: None (occurrence: None)
  Receive Date: 20120606
  Receipt Date: 20120529
  Transmission Date: 20120825
  Serious: Yes (Hospitalization, Other)
  Sender: FDA-Public Use
  Company Number: PHHY2012DE004920

PATIENT
  Sex: Female
  Weight: 83 kg

DRUGS (4)
  1. SERTRALINE HYDROCHLORIDE [Concomitant]
     Dosage: 100 MG, QD
     Dates: start: 20060701
  2. CLOZAPINE [Suspect]
     Indication: SCHIZOPHRENIA, PARANOID TYPE
     Dosage: 300 MG, QD
     Dates: start: 20040101, end: 20111228
  3. AMISULPRIDE [Concomitant]
     Dosage: 50 MG, QD
     Dates: start: 20060701
  4. CLOZAPINE [Suspect]
     Dosage: 300 MG, QD
     Dates: start: 20120104, end: 20120101

REACTIONS (4)
  - RIB FRACTURE [None]
  - PNEUMONIA [None]
  - LEUKOPENIA [None]
  - ANTIPSYCHOTIC DRUG LEVEL INCREASED [None]
